FAERS Safety Report 7517446-5 (Version None)
Quarter: 2011Q2

REPORT INFORMATION
  Report Type: 
  Country: None (occurrence: None)
  Receive Date: 20110601
  Receipt Date: 20110519
  Transmission Date: 20111010
  Serious: Yes (Hospitalization)
  Sender: FDA-Public Use
  Company Number: GB-GENENTECH-313488

PATIENT
  Sex: Female

DRUGS (26)
  1. ACETAMINOPHEN [Concomitant]
     Dosage: 1 G, SINGLE
     Route: 048
     Dates: start: 20110126, end: 20110126
  2. METOCLOPRAMIDE [Concomitant]
     Indication: ANTIEMETIC SUPPORTIVE CARE
     Dosage: 10 MG, SINGLE
     Route: 042
     Dates: start: 20110126, end: 20110126
  3. BENDROFLUMETHIAZIDE [Concomitant]
     Indication: POLYURIA
     Dosage: 25 MG, QAM
     Route: 048
  4. ZOPICLONE [Concomitant]
     Indication: INSOMNIA
     Dosage: 3.75 MG, QPM
     Route: 048
  5. LANSOPRAZOLE [Concomitant]
     Indication: ANTACID THERAPY
     Dosage: 30 MG, QAM
     Route: 048
  6. OXYCONTIN [Concomitant]
     Indication: ANALGESIC THERAPY
     Dosage: 30 MG, BID
     Route: 048
     Dates: end: 20100524
  7. TRIMETHOPRIM [Concomitant]
     Indication: PRODUCT USED FOR UNKNOWN INDICATION
     Dosage: 100 MG, BID
     Route: 048
  8. QUINIDINE SULFATE [Concomitant]
     Indication: MUSCLE SPASMS
     Dosage: 300 G, UNK
     Route: 048
  9. RAMIPRIL [Concomitant]
     Indication: HYPERTENSION
     Dosage: 5 MG, QAM
     Route: 048
  10. EXEMESTANE [Concomitant]
     Indication: BREAST CANCER
     Dosage: 25 MG, QAM
     Route: 048
  11. RITUXIMAB [Suspect]
     Indication: B-CELL LYMPHOMA
     Dosage: 700 MG, SINGLE
     Route: 042
     Dates: start: 20100517, end: 20100517
  12. ALLOPURINOL [Concomitant]
     Indication: PROPHYLAXIS
     Dosage: 300 MG, QAM
     Route: 048
     Dates: start: 20100402
  13. OXYCODONE HCL [Concomitant]
     Indication: ANALGESIC THERAPY
     Dosage: 10 MG, Q4H
     Route: 048
  14. CYCLIZINE [Concomitant]
     Indication: VERTIGO
     Dosage: 50 MG, TID
     Route: 048
  15. ONDANSETRON [Concomitant]
     Indication: ANTIEMETIC SUPPORTIVE CARE
     Dosage: 8 MG, BID
     Route: 048
     Dates: start: 20100517, end: 20100520
  16. ALBUTEROL [Concomitant]
     Indication: BRONCHOSPASM
     Dosage: 100 A?G, UNK
     Route: 055
  17. ORAMORPH SR [Concomitant]
     Indication: ANALGESIC THERAPY
     Dosage: 5 MG, SINGLE
     Route: 048
     Dates: start: 20110126, end: 20110126
  18. RITUXIMAB [Suspect]
     Dosage: 600 MG, SINGLE
     Route: 042
     Dates: start: 20110107, end: 20110107
  19. NEUPOGEN [Concomitant]
     Indication: WHITE BLOOD CELL COUNT DECREASED
     Dosage: 263 A?G, QAM
     Route: 058
     Dates: start: 20100517, end: 20100522
  20. ACETAMINOPHEN [Concomitant]
     Indication: ANALGESIC THERAPY
     Dosage: 1 G, SINGLE
     Route: 048
     Dates: start: 20110107, end: 20110107
  21. QVAR 40 [Concomitant]
     Indication: BRONCHOSPASM
     Dosage: 100 A?G, UNK
     Route: 055
  22. METOCLOPRAMIDE [Concomitant]
     Dosage: 10 MG, TID
     Route: 042
     Dates: start: 20100127
  23. MOVIPREP [Concomitant]
     Indication: LAXATIVE SUPPORTIVE CARE
     Dosage: UNK UNK, BID
     Route: 048
  24. LEVOTHYROXINE SODIUM [Concomitant]
     Indication: HYPOTHYROIDISM
     Dosage: 125 MG, QAM
     Route: 048
  25. ANUSOL [Concomitant]
     Indication: CONSTIPATION
     Dosage: UNK
     Route: 054
  26. CHLORPHENIRAMINE MALEATE [Concomitant]
     Indication: ANALGESIC THERAPY
     Dosage: 4 MG, UNK
     Route: 048
     Dates: start: 20110107, end: 20110107

REACTIONS (1)
  - EPISTAXIS [None]
